APPROVED DRUG PRODUCT: IMATINIB MESYLATE
Active Ingredient: IMATINIB MESYLATE
Strength: EQ 100MG BASE
Dosage Form/Route: TABLET;ORAL
Application: A079179 | Product #001 | TE Code: AB
Applicant: APOTEX INC
Approved: Aug 5, 2016 | RLD: No | RS: No | Type: RX